FAERS Safety Report 9844102 (Version 9)
Quarter: 2014Q2

REPORT INFORMATION
  Report Type: Spontaneous
  Country: IL (occurrence: IL)
  Receive Date: 20140127
  Receipt Date: 20140602
  Transmission Date: 20141212
  Serious: Yes (Disabling, Other)
  Sender: FDA-Public Use
  Company Number: IL-MERCK-1311RUS000344

PATIENT
  Age: 76 Year
  Sex: Male

DRUGS (7)
  1. REBETOL [Suspect]
     Indication: HEPATITIS C
     Dosage: UNK
     Route: 048
     Dates: start: 20131014, end: 20131115
  2. REBETOL [Suspect]
     Dosage: UNK
     Route: 048
     Dates: start: 2014
  3. PEGINTRON [Suspect]
     Indication: HEPATITIS C
     Dosage: UNK
     Dates: start: 20131016
  4. VICTRELIS [Suspect]
     Indication: HEPATITIS C
     Dosage: UNK
     Route: 048
     Dates: start: 20131115
  5. AMLOW [Concomitant]
     Dosage: UNK
  6. URSOLIT [Concomitant]
     Dosage: UNK
  7. AVODART [Concomitant]
     Dosage: UNK

REACTIONS (13)
  - Deafness [Unknown]
  - Gait disturbance [Unknown]
  - Full blood count decreased [Unknown]
  - Muscular weakness [Unknown]
  - Asthenia [Unknown]
  - Neutrophil count decreased [Not Recovered/Not Resolved]
  - Head discomfort [Unknown]
  - Confusional state [Unknown]
  - Proctalgia [Unknown]
  - Haemoglobin decreased [Not Recovered/Not Resolved]
  - White blood cell count decreased [Unknown]
  - Platelet count decreased [Not Recovered/Not Resolved]
  - Drug hypersensitivity [Not Recovered/Not Resolved]
